FAERS Safety Report 5742921-3 (Version None)
Quarter: 2008Q2

REPORT INFORMATION
  Report Type: 
  Country: None (occurrence: None)
  Receive Date: 20080515
  Receipt Date: 20080515
  Transmission Date: 20081010
  Serious: Yes (Other)
  Sender: FDA-Public Use
  Company Number: None

PATIENT
  Age: 82 Year
  Sex: Female
  Weight: 65.318 kg

DRUGS (1)
  1. DIGOXIN  125   BERTEK-DIGITEK [Suspect]
     Indication: CARDIAC DISORDER
     Dosage: 1 TABLET EVERYDAY PO
     Route: 048
     Dates: start: 20080101, end: 20080513

REACTIONS (4)
  - ANXIETY [None]
  - ATRIAL FIBRILLATION [None]
  - MALAISE [None]
  - PHARMACEUTICAL PRODUCT COMPLAINT [None]
